FAERS Safety Report 9824145 (Version 2)
Quarter: 2014Q1

REPORT INFORMATION
  Report Type: Spontaneous
  Country: CA (occurrence: CA)
  Receive Date: 20140116
  Receipt Date: 20140311
  Transmission Date: 20141002
  Serious: Yes (Other)
  Sender: FDA-Public Use
  Company Number: CA-GLAXOSMITHKLINE-A1055470A

PATIENT
  Age: 81 Year
  Sex: Female

DRUGS (1)
  1. TAFINLAR [Suspect]
     Indication: METASTATIC MALIGNANT MELANOMA
     Dosage: 150MG TWICE PER DAY
     Route: 065
     Dates: start: 20131220, end: 20140303

REACTIONS (5)
  - Malignant melanoma [Unknown]
  - Melanocytic naevus [Unknown]
  - Decreased appetite [Unknown]
  - Metastases to central nervous system [Not Recovered/Not Resolved]
  - Confusional state [Not Recovered/Not Resolved]
